FAERS Safety Report 9491432 (Version 2)
Quarter: 2013Q1

REPORT INFORMATION
  Report Type: Not Available
  Country: US (occurrence: US)
  Receive Date: 20120619
  Receipt Date: 20120619
  Transmission Date: 20140127
  Serious: Yes (Hospitalization)
  Sender: FDA-Public Use
  Company Number: US-LUNDBECK-DKLU1075117

PATIENT
  Age: 11 None
  Sex: Female
  Weight: 43 kg

DRUGS (16)
  1. CLOBAZAM [Suspect]
     Indication: LENNOX-GASTAUT SYNDROME
     Dates: start: 20090908
  2. CLOBAZAM [Suspect]
     Route: 048
     Dates: start: 20110324, end: 20111123
  3. CLOBAZAM [Suspect]
     Route: 048
     Dates: start: 20111123
  4. CLOBAZAM [Suspect]
     Route: 048
     Dates: start: 20111123
  5. VIMPAT [Concomitant]
     Indication: CONVULSION
     Route: 048
     Dates: start: 20110915, end: 20111123
  6. VIMPAT [Concomitant]
     Route: 048
     Dates: start: 20111123
  7. BANZEL [Concomitant]
     Indication: CONVULSION
     Route: 048
     Dates: start: 20110324, end: 20111123
  8. BANZEL [Concomitant]
     Dates: start: 20110324, end: 20111123
  9. BANZEL [Concomitant]
     Route: 048
     Dates: start: 20111123
  10. BANZEL [Concomitant]
     Dates: start: 201111
  11. TRAZODONE [Concomitant]
     Indication: ATTENTION DEFICIT/HYPERACTIVITY DISORDER
     Route: 048
     Dates: start: 20110602
  12. TRAZODONE [Concomitant]
     Route: 048
     Dates: start: 20111124
  13. KLONOPIN [Concomitant]
     Indication: CONVULSION
     Route: 050
     Dates: start: 20111123, end: 20111123
  14. KLONOPIN [Concomitant]
     Dosage: 1 WAFER
     Route: 048
     Dates: start: 20111124
  15. MIRALAX [Concomitant]
     Indication: PRODUCT USED FOR UNKNOWN INDICATION
     Dosage: 8 GRAMS IN 8 OUNCES OF FLUID
     Route: 048
  16. ADDERALL [Concomitant]
     Indication: ATTENTION DEFICIT/HYPERACTIVITY DISORDER
     Route: 048
     Dates: start: 20111124

REACTIONS (1)
  - Status epilepticus [Recovered/Resolved]
